FAERS Safety Report 5215444-8 (Version None)
Quarter: 2007Q1

REPORT INFORMATION
  Report Type: 
  Country: None (occurrence: None)
  Receive Date: 20070119
  Receipt Date: 20070119
  Transmission Date: 20070707
  Serious: Yes (Death, Life-Threatening)
  Sender: FDA-Public Use
  Company Number: None

PATIENT
  Age: 20 Year
  Sex: Male
  Weight: 77.5651 kg

DRUGS (1)
  1. METHADONE HCL [Suspect]

REACTIONS (2)
  - DRUG SCREEN POSITIVE [None]
  - SELF-MEDICATION [None]
